FAERS Safety Report 25524706 (Version 1)
Quarter: 2025Q3

REPORT INFORMATION
  Report Type: Spontaneous
  Country: US (occurrence: None)
  Receive Date: 20250705
  Receipt Date: 20250705
  Transmission Date: 20251020
  Serious: Yes (unspecified)
  Sender: FDA-CTU
  Company Number: None

PATIENT
  Age: 68 Year
  Sex: Male
  Weight: 67.5 kg

DRUGS (4)
  1. LEVOFLOXACIN [Suspect]
     Active Substance: LEVOFLOXACIN
     Indication: Endoscopic retrograde cholangiopancreatography
     Dosage: 3 TABLET(S) DAILY ORAL
     Route: 048
     Dates: start: 20250530, end: 20250601
  2. Lipitor 40 mg/day [Concomitant]
  3. VITAMINS [Concomitant]
     Active Substance: VITAMINS
  4. FISH OIL [Concomitant]
     Active Substance: FISH OIL

REACTIONS (7)
  - Heart rate increased [None]
  - Anxiety [None]
  - Stiff leg syndrome [None]
  - Tendon pain [None]
  - Musculoskeletal disorder [None]
  - Tendonitis [None]
  - Product communication issue [None]

NARRATIVE: CASE EVENT DATE: 20250704
